FAERS Safety Report 17960619 (Version 1)
Quarter: 2020Q2

REPORT INFORMATION
  Report Type: Spontaneous
  Country: US (occurrence: US)
  Receive Date: 20200630
  Receipt Date: 20200630
  Transmission Date: 20200714
  Serious: Yes (Hospitalization)
  Sender: FDA-Public Use
  Company Number: US-PACIRA-202000275

PATIENT
  Sex: Female

DRUGS (3)
  1. BUPIVACAINE. [Suspect]
     Active Substance: BUPIVACAINE
     Indication: POSTOPERATIVE ANALGESIA
     Dosage: 20 ML OF 0.5% AND 20 ML OF LIPOSOMAL BUPIVACAINE MIXED WITH SALINE
  2. LIPOSOME BUBIVACAINE [Suspect]
     Active Substance: BUPIVACAINE
     Indication: POSTOPERATIVE ANALGESIA
     Dosage: 20 ML AND 20 ML OF 0.5% BUPIVACAINE MIXED WITH SALINE
  3. SALINE [Concomitant]
     Active Substance: SODIUM CHLORIDE
     Indication: TRANSVERSUS ABDOMINIS PLANE BLOCK
     Dosage: MIXED WITH, 20 ML OF LIPOSOMAL BUPIVACAINE AND 20 ML OF 0.5% BUPIVACAINE

REACTIONS (2)
  - Hospitalisation [Unknown]
  - Procedural pain [Unknown]
